FAERS Safety Report 17091394 (Version 1)
Quarter: 2019Q4

REPORT INFORMATION
  Report Type: Spontaneous
  Country: TW (occurrence: TW)
  Receive Date: 20191129
  Receipt Date: 20191129
  Transmission Date: 20200122
  Serious: Yes (Other)
  Sender: FDA-Public Use
  Company Number: TW-AMGEN-TWNSP2019197096

PATIENT
  Age: 71 Year
  Sex: Female

DRUGS (2)
  1. ENBREL [Suspect]
     Active Substance: ETANERCEPT
     Indication: RHEUMATOID ARTHRITIS
     Dosage: 7 DOSAGE FORM, QMO
     Route: 058
  2. QUININE [Concomitant]
     Active Substance: QUININE
     Dosage: UNK
     Route: 048

REACTIONS (2)
  - Foot fracture [Recovering/Resolving]
  - Off label use [Unknown]
